FAERS Safety Report 7503488-2 (Version None)
Quarter: 2011Q1

REPORT INFORMATION
  Report Type: 
  Country: None (occurrence: None)
  Receive Date: 20110322
  Receipt Date: 20110110
  Transmission Date: 20110831
  Serious: Yes (Hospitalization)
  Sender: FDA-Public Use
  Company Number: UTC-004187

PATIENT
  Age: 35 Year
  Sex: Male
  Weight: 86.4 kg

DRUGS (3)
  1. TRACLEER [Concomitant]
  2. TYVASO [Suspect]
     Indication: PULMONARY ARTERIAL HYPERTENSION
     Dosage: (24 MCG), INHALATION
     Route: 055
     Dates: start: 20101230, end: 20110108
  3. REVATIO [Concomitant]

REACTIONS (1)
  - SYNCOPE [None]
